FAERS Safety Report 8964094 (Version 1)
Quarter: 2012Q4

REPORT INFORMATION
  Report Type: 
  Country: US (occurrence: US)
  Receive Date: 20121214
  Receipt Date: 20121214
  Transmission Date: 20130627
  Serious: No
  Sender: FDA-Public Use
  Company Number: US-PFIZER INC-2012316320

PATIENT
  Age: 52 Year
  Sex: Female
  Weight: 117.91 kg

DRUGS (7)
  1. LYRICA [Suspect]
     Indication: SCIATIC NEURALGIA
     Dosage: 75 mg, 2x/day
     Route: 048
     Dates: start: 20121208, end: 20121210
  2. LYRICA [Suspect]
     Dosage: 75 mg, 2x/day
     Route: 048
     Dates: start: 20121212
  3. BENICAR [Concomitant]
     Indication: BLOOD PRESSURE HIGH
     Dosage: UNK
  4. CELEBREX [Concomitant]
     Indication: RHEUMATOID ARTHRITIS
     Dosage: UNK
  5. FUROSEMIDE [Concomitant]
     Indication: ANKLE SWELLING
     Dosage: UNK
  6. SPIRONOLACTONE [Concomitant]
     Indication: ANKLE SWELLING
     Dosage: UNK
  7. ENBREL [Concomitant]
     Dosage: UNK, weekly

REACTIONS (2)
  - Dizziness [Not Recovered/Not Resolved]
  - Incorrect dose administered [Not Recovered/Not Resolved]
